FAERS Safety Report 8178348-7 (Version None)
Quarter: 2012Q1

REPORT INFORMATION
  Report Type: 
  Country: None (occurrence: None)
  Receive Date: 20120126
  Receipt Date: 20111202
  Transmission Date: 20120608
  Serious: No
  Sender: FDA-Public Use
  Company Number: PHEH2011US04285

PATIENT
  Age: 15 Year
  Sex: Male
  Weight: 63.5 kg

DRUGS (7)
  1. AFINITOR [Suspect]
     Indication: ASTROCYTOMA
     Dosage: 05 MG DAILY, ORAL : 3.75 MG, ORAL
     Route: 048
     Dates: end: 20111117
  2. AFINITOR [Suspect]
     Indication: TUBEROUS SCLEROSIS
     Dosage: 05 MG DAILY, ORAL : 3.75 MG, ORAL
     Route: 048
     Dates: end: 20111117
  3. AFINITOR [Suspect]
     Indication: ASTROCYTOMA
     Dosage: 05 MG DAILY, ORAL : 3.75 MG, ORAL
     Route: 048
     Dates: start: 20111005
  4. AFINITOR [Suspect]
     Indication: TUBEROUS SCLEROSIS
     Dosage: 05 MG DAILY, ORAL : 3.75 MG, ORAL
     Route: 048
     Dates: start: 20111005
  5. ABILIFY [Concomitant]
  6. ZONEGRAN [Concomitant]
  7. VITAMINS (ASCORBIC ACID, ERGOCALCIFEROL, NICOTINAMIDE, RETINOL, RIBOFL [Concomitant]

REACTIONS (4)
  - AUTISM [None]
  - ABNORMAL BEHAVIOUR [None]
  - ORAL PAIN [None]
  - IRRITABILITY [None]
